FAERS Safety Report 24533049 (Version 1)
Quarter: 2024Q4

REPORT INFORMATION
  Report Type: Spontaneous
  Country: US (occurrence: US)
  Receive Date: 20241022
  Receipt Date: 20241022
  Transmission Date: 20250115
  Serious: Yes (Hospitalization, Other)
  Sender: Kenton Chemicals & Pharmaceuticals
  Company Number: US-Kenton Chemicals + Pharmaceuticals Corporation-2163501

PATIENT
  Age: 58 Year
  Sex: Female

DRUGS (2)
  1. ANASTROZOLE [Suspect]
     Active Substance: ANASTROZOLE
     Indication: Breast cancer
  2. APIXABAN [Concomitant]
     Active Substance: APIXABAN

REACTIONS (1)
  - Anti-neutrophil cytoplasmic antibody positive vasculitis [Recovered/Resolved]
